FAERS Safety Report 9696164 (Version 3)
Quarter: 2013Q4

REPORT INFORMATION
  Report Type: Report from Study
  Country: UA (occurrence: UA)
  Receive Date: 20131119
  Receipt Date: 20131202
  Transmission Date: 20140711
  Serious: Yes (Other)
  Sender: FDA-Public Use
  Company Number: UA-TEVA-444876USA

PATIENT
  Age: 57 Year
  Sex: Male
  Weight: 71 kg

DRUGS (6)
  1. BENDAMUSTINE [Suspect]
     Indication: CHRONIC LYMPHOCYTIC LEUKAEMIA
     Dosage: 90 MILLIGRAM DAILY;
     Route: 042
     Dates: start: 20130328
  2. BENDAMUSTINE [Suspect]
     Dosage: 90 MILLIGRAM DAILY;
     Route: 042
     Dates: start: 20130904, end: 20130904
  3. RITUXIMAB [Suspect]
     Indication: CHRONIC LYMPHOCYTIC LEUKAEMIA
     Dosage: 900 MILLIGRAM DAILY;
     Route: 042
     Dates: start: 20130327
  4. RITUXIMAB [Suspect]
     Dosage: 900 MILLIGRAM DAILY;
     Route: 042
     Dates: start: 20130904, end: 20130904
  5. IBRUTINIB/PLACEBO [Suspect]
     Indication: CHRONIC LYMPHOCYTIC LEUKAEMIA
     Dosage: 420 MILLIGRAM DAILY;
     Route: 048
     Dates: start: 20130328
  6. IBRUTINIB/PLACEBO [Suspect]
     Dosage: 420 MILLIGRAM DAILY;
     Route: 048
     Dates: start: 20130928, end: 20131001

REACTIONS (1)
  - Muscle haemorrhage [Recovered/Resolved]
